FAERS Safety Report 10614317 (Version 1)
Quarter: 2014Q4

REPORT INFORMATION
  Report Type: Spontaneous
  Country: IE (occurrence: IE)
  Receive Date: 20141128
  Receipt Date: 20141128
  Transmission Date: 20150529
  Serious: Yes (Hospitalization)
  Sender: FDA-Public Use
  Company Number: PHFR2014IE007974

PATIENT
  Age: 31 Year
  Sex: Male

DRUGS (5)
  1. CLOZARIL [Suspect]
     Active Substance: CLOZAPINE
     Route: 048
     Dates: start: 20091218, end: 20141115
  2. PRIADEL [Concomitant]
     Active Substance: LITHIUM CARBONATE
     Indication: AFFECTIVE DISORDER
     Route: 065
  3. CHLOROFORM [Suspect]
     Active Substance: CHLOROFORM
     Dosage: UNK
     Route: 065
     Dates: start: 20141113
  4. CHLOROFORM [Suspect]
     Active Substance: CHLOROFORM
     Indication: PRODUCT USED FOR UNKNOWN INDICATION
     Dosage: UNK
     Route: 065
  5. LITHIUM [Concomitant]
     Active Substance: LITHIUM CARBONATE
     Indication: PRODUCT USED FOR UNKNOWN INDICATION
     Route: 065

REACTIONS (5)
  - Overdose [Unknown]
  - Liver function test abnormal [Unknown]
  - White blood cell count decreased [Recovered/Resolved]
  - Blood creatinine increased [Unknown]
  - Alanine aminotransferase increased [Unknown]

NARRATIVE: CASE EVENT DATE: 20141113
